FAERS Safety Report 5882419-5 (Version None)
Quarter: 2008Q3

REPORT INFORMATION
  Report Type: 
  Country: None (occurrence: None)
  Receive Date: 20080913
  Receipt Date: 20080803
  Transmission Date: 20090109
  Serious: No
  Sender: FDA-Public Use
  Company Number: US-ABBOTT-08P-163-0468629-00

PATIENT
  Sex: Female

DRUGS (4)
  1. HUMIRA [Suspect]
     Indication: CROHN'S DISEASE
     Route: 058
     Dates: start: 20080704, end: 20080704
  2. HUMIRA [Suspect]
  3. MESALAMINE [Concomitant]
     Indication: CROHN'S DISEASE
  4. DILTIAZEM HCL [Concomitant]
     Indication: CARDIAC DISORDER

REACTIONS (1)
  - INJECTION SITE PAIN [None]
